FAERS Safety Report 6383226-X (Version None)
Quarter: 2009Q3

REPORT INFORMATION
  Report Type: 
  Country: None (occurrence: None)
  Receive Date: 20090929
  Receipt Date: 20090909
  Transmission Date: 20100115
  Serious: Yes (Hospitalization)
  Sender: FDA-Public Use
  Company Number: JPI-P-008339

PATIENT
  Age: 43 Year
  Sex: Female

DRUGS (18)
  1. XYREM [Suspect]
     Indication: FIBROMYALGIA
     Dosage: SEE IMAGE
     Route: 048
     Dates: start: 20090703, end: 20090726
  2. XYREM [Suspect]
     Indication: SOMNOLENCE
     Dosage: SEE IMAGE
     Route: 048
     Dates: start: 20090703, end: 20090726
  3. XYREM [Suspect]
     Indication: FIBROMYALGIA
     Dosage: SEE IMAGE
     Route: 048
     Dates: start: 20090727, end: 20090804
  4. XYREM [Suspect]
     Indication: SOMNOLENCE
     Dosage: SEE IMAGE
     Route: 048
     Dates: start: 20090727, end: 20090804
  5. XYREM [Suspect]
     Indication: FIBROMYALGIA
     Dosage: SEE IMAGE
     Route: 048
     Dates: start: 20090805, end: 20090808
  6. XYREM [Suspect]
     Indication: SOMNOLENCE
     Dosage: SEE IMAGE
     Route: 048
     Dates: start: 20090805, end: 20090808
  7. XYREM [Suspect]
     Indication: FIBROMYALGIA
     Dosage: SEE IMAGE
     Route: 048
     Dates: start: 20090809, end: 20090816
  8. XYREM [Suspect]
     Indication: SOMNOLENCE
     Dosage: SEE IMAGE
     Route: 048
     Dates: start: 20090809, end: 20090816
  9. UNSPECIFIED MEDICATION [Suspect]
     Indication: DRUG USE FOR UNKNOWN INDICATION
  10. FEXOFENADINE HYDROCHLORIDE [Concomitant]
  11. RIFABUTIN [Concomitant]
  12. CLARITHROMYCIN [Concomitant]
  13. METRONIDAZOLE [Concomitant]
  14. VITAMIN TAB [Concomitant]
  15. PREGABALIN [Concomitant]
  16. CYCLOBENZAPRINE HCL [Concomitant]
  17. FENTANYL [Concomitant]
  18. PROBIOTICS [Concomitant]

REACTIONS (20)
  - ACTIVITIES OF DAILY LIVING IMPAIRED [None]
  - AMNESIA [None]
  - CANDIDIASIS [None]
  - COGNITIVE DISORDER [None]
  - CONFUSIONAL STATE [None]
  - CONSTIPATION [None]
  - DELUSION [None]
  - DIARRHOEA [None]
  - DIET REFUSAL [None]
  - DIZZINESS [None]
  - DRUG INTERACTION [None]
  - FATIGUE [None]
  - FEELING ABNORMAL [None]
  - GASTROINTESTINAL FUNGAL INFECTION [None]
  - HALLUCINATION, VISUAL [None]
  - INCOHERENT [None]
  - INSOMNIA [None]
  - MEMORY IMPAIRMENT [None]
  - NAUSEA [None]
  - VOMITING [None]
